FAERS Safety Report 6413814-3 (Version None)
Quarter: 2009Q4

REPORT INFORMATION
  Report Type: 
  Country: None (occurrence: None)
  Receive Date: 20091026
  Receipt Date: 20091019
  Transmission Date: 20100525
  Serious: Yes (Other)
  Sender: FDA-Public Use
  Company Number: B0599669A

PATIENT
  Age: 65 Year
  Sex: Female
  Weight: 85.6 kg

DRUGS (2)
  1. ALLI [Suspect]
     Route: 065
     Dates: start: 20090616
  2. METFORMIN HCL [Concomitant]
     Route: 065

REACTIONS (3)
  - ABDOMINAL PAIN UPPER [None]
  - DIABETES MELLITUS [None]
  - DIARRHOEA [None]
